FAERS Safety Report 18285258 (Version 1)
Quarter: 2020Q3

REPORT INFORMATION
  Report Type: Spontaneous
  Country: CN (occurrence: CN)
  Receive Date: 20200919
  Receipt Date: 20200919
  Transmission Date: 20201103
  Serious: Yes (Death, Hospitalization, Other)
  Sender: FDA-Public Use
  Company Number: CN-SUN PHARMACEUTICAL INDUSTRIES LTD-2019R1-221171

PATIENT
  Age: 60 Year
  Sex: Male

DRUGS (2)
  1. ERLOTINIB [Suspect]
     Active Substance: ERLOTINIB
     Indication: PRODUCT USED FOR UNKNOWN INDICATION
     Dosage: 150 MILLIGRAM/3 DAYS PER CYCLE
     Route: 048
  2. CABOZANTINIB [Suspect]
     Active Substance: CABOZANTINIB
     Indication: PRODUCT USED FOR UNKNOWN INDICATION
     Dosage: 50 MILLIGRAM/3 DAYS PER CYCLE
     Route: 048

REACTIONS (15)
  - Cardiac failure chronic [Unknown]
  - Pneumonia [Unknown]
  - Medication error [Unknown]
  - Drug eruption [Unknown]
  - Anaemia [Unknown]
  - Treatment noncompliance [Unknown]
  - Metabolic acidosis [Unknown]
  - Respiratory failure [Fatal]
  - Interstitial lung disease [Unknown]
  - Renal impairment [Unknown]
  - Ecchymosis [Unknown]
  - Hypoproteinaemia [Unknown]
  - Circulatory collapse [Fatal]
  - Hepatic function abnormal [Unknown]
  - Acute myocardial infarction [Unknown]
